FAERS Safety Report 6295965-X (Version None)
Quarter: 2009Q3

REPORT INFORMATION
  Report Type: 
  Country: None (occurrence: None)
  Receive Date: 20090803
  Receipt Date: 20090803
  Transmission Date: 20100115
  Serious: No
  Sender: FDA-Public Use
  Company Number: None

PATIENT
  Sex: Male
  Weight: 79.3795 kg

DRUGS (2)
  1. LYRICA [Suspect]
     Indication: NEURALGIA
     Dosage: 50MG. TWICE A DAY
     Dates: start: 20090422, end: 20090610
  2. LYRICA [Suspect]
     Indication: PAIN
     Dosage: 50MG. TWICE A DAY
     Dates: start: 20090422, end: 20090610

REACTIONS (2)
  - ABNORMAL BEHAVIOUR [None]
  - AMNESIA [None]
